FAERS Safety Report 6842535-8 (Version None)
Quarter: 2010Q3

REPORT INFORMATION
  Report Type: 
  Country: None (occurrence: None)
  Receive Date: 20100714
  Receipt Date: 20070731
  Transmission Date: 20110219
  Serious: No
  Sender: FDA-Public Use
  Company Number: US-PFIZER INC-2007065016

PATIENT
  Sex: Male
  Weight: 122.5 kg

DRUGS (17)
  1. CHANTIX [Suspect]
     Indication: SMOKING CESSATION THERAPY
     Route: 048
     Dates: start: 20070729
  2. TERAZOSIN HCL [Concomitant]
     Indication: PROSTATIC DISORDER
  3. POTASSIUM CHLORIDE [Concomitant]
  4. FUROSEMIDE [Concomitant]
  5. OMEPRAZOLE [Concomitant]
     Indication: VASCULAR OCCLUSION
  6. ALLOPURINOL [Concomitant]
  7. MONTELUKAST SODIUM [Concomitant]
  8. COLCHICINE [Concomitant]
  9. DUONEB [Concomitant]
  10. BUDESONIDE [Concomitant]
  11. SEREVENT [Concomitant]
  12. NIACIN [Concomitant]
  13. VITAMINS [Concomitant]
  14. ACETYLSALICYLIC ACID [Concomitant]
  15. FISH OIL [Concomitant]
  16. MUCINEX [Concomitant]
  17. OXYGEN [Concomitant]
     Indication: DYSPNOEA

REACTIONS (1)
  - DIARRHOEA [None]
